FAERS Safety Report 10164520 (Version 1)
Quarter: 2014Q2

REPORT INFORMATION
  Report Type: Spontaneous
  Country: US (occurrence: US)
  Receive Date: 20140510
  Receipt Date: 20140510
  Transmission Date: 20141212
  Serious: No
  Sender: FDA-Public Use
  Company Number: US-BRISTOL-MYERS SQUIBB COMPANY-20089561

PATIENT
  Age: 67 Year
  Sex: Male
  Weight: 108.84 kg

DRUGS (12)
  1. BYDUREON [Suspect]
     Indication: TYPE 2 DIABETES MELLITUS
     Route: 058
     Dates: start: 20131001
  2. VITAMINS [Concomitant]
  3. MUCINEX [Concomitant]
  4. NIACIN [Concomitant]
     Dosage: 3TABS
  5. MAGNESIUM [Concomitant]
  6. BABY ASPIRIN [Concomitant]
  7. DIOVAN [Concomitant]
  8. LYRICA [Concomitant]
  9. RANITIDINE [Concomitant]
  10. SIMVASTATIN [Concomitant]
  11. GAS-X [Concomitant]
  12. TOPIRAMATE [Concomitant]

REACTIONS (2)
  - Underdose [Unknown]
  - Product quality issue [Unknown]
